FAERS Safety Report 15960967 (Version 1)
Quarter: 2019Q1

REPORT INFORMATION
  Report Type: Spontaneous
  Country: US (occurrence: US)
  Receive Date: 20190214
  Receipt Date: 20190214
  Transmission Date: 20190417
  Serious: No
  Sender: FDA-Public Use
  Company Number: US-PFIZER INC-2019057512

PATIENT
  Age: 49 Year
  Sex: Male
  Weight: 106.59 kg

DRUGS (1)
  1. VIAGRA [Suspect]
     Active Substance: SILDENAFIL CITRATE
     Dosage: 25 MG, 1X/DAY (ONE TIME AT NIGHT)
     Dates: start: 201807

REACTIONS (3)
  - Ejaculation disorder [Unknown]
  - Drug effect prolonged [Unknown]
  - Erection increased [Unknown]
